FAERS Safety Report 9363636 (Version 1)
Quarter: 2013Q2

REPORT INFORMATION
  Report Type: Spontaneous
  Country: GB (occurrence: GB)
  Receive Date: 20130624
  Receipt Date: 20130624
  Transmission Date: 20140414
  Serious: Yes (Other)
  Sender: FDA-Public Use
  Company Number: GB-RANBAXY-2013R1-70299

PATIENT
  Age: 26 Year
  Sex: Female

DRUGS (30)
  1. CO-CODAMOL [Suspect]
     Indication: PAIN
     Route: 065
  2. CO-CODAMOL [Suspect]
     Indication: HYPERMOBILITY SYNDROME
  3. CO-CODAMOL [Suspect]
     Indication: OSTEOARTHRITIS
  4. CO-CODAMOL [Suspect]
     Indication: OSTEOPOROSIS
  5. CO-CODAMOL [Suspect]
     Indication: MYALGIA
  6. CO-CODAMOL [Suspect]
     Indication: RHEUMATOID ARTHRITIS
  7. DICLOFENAC [Suspect]
     Indication: PAIN
     Route: 065
  8. DICLOFENAC [Suspect]
     Indication: HYPERMOBILITY SYNDROME
  9. DICLOFENAC [Suspect]
     Indication: OSTEOARTHRITIS
  10. DICLOFENAC [Suspect]
     Indication: OSTEOPOROSIS
  11. DICLOFENAC [Suspect]
     Indication: MYALGIA
  12. DICLOFENAC [Suspect]
     Indication: RHEUMATOID ARTHRITIS
  13. NAPROXEN [Suspect]
     Indication: PAIN
     Route: 065
  14. NAPROXEN [Suspect]
     Indication: HYPERMOBILITY SYNDROME
  15. NAPROXEN [Suspect]
     Indication: OSTEOARTHRITIS
  16. NAPROXEN [Suspect]
     Indication: OSTEOPOROSIS
  17. NAPROXEN [Suspect]
     Indication: MYALGIA
  18. NAPROXEN [Suspect]
     Indication: RHEUMATOID ARTHRITIS
  19. TRAMADOL [Suspect]
     Indication: PAIN
     Route: 065
  20. TRAMADOL [Suspect]
     Indication: HYPERMOBILITY SYNDROME
  21. TRAMADOL [Suspect]
     Indication: OSTEOARTHRITIS
  22. TRAMADOL [Suspect]
     Indication: OSTEOPOROSIS
  23. TRAMADOL [Suspect]
     Indication: MYALGIA
  24. TRAMADOL [Suspect]
     Indication: RHEUMATOID ARTHRITIS
  25. LEFLUNOMIDE [Suspect]
     Indication: PAIN
     Route: 065
  26. LEFLUNOMIDE [Suspect]
     Indication: HYPERMOBILITY SYNDROME
  27. LEFLUNOMIDE [Suspect]
     Indication: OSTEOARTHRITIS
  28. LEFLUNOMIDE [Suspect]
     Indication: OSTEOPOROSIS
  29. LEFLUNOMIDE [Suspect]
     Indication: MYALGIA
  30. LEFLUNOMIDE [Suspect]
     Indication: RHEUMATOID ARTHRITIS

REACTIONS (2)
  - Drug ineffective [Unknown]
  - Suicidal ideation [Unknown]
